FAERS Safety Report 6427073-9 (Version None)
Quarter: 2009Q4

REPORT INFORMATION
  Report Type: 
  Country: None (occurrence: None)
  Receive Date: 20091104
  Receipt Date: 20091023
  Transmission Date: 20100525
  Serious: Yes (Other)
  Sender: FDA-Public Use
  Company Number: SG-BRISTOL-MYERS SQUIBB COMPANY-14830574

PATIENT
  Age: 36 Year
  Sex: Female

DRUGS (1)
  1. AMPHOTERICIN B [Suspect]
     Indication: ANTIFUNGAL TREATMENT
     Dosage: 1 DF=1MG/KG/DAY

REACTIONS (1)
  - HEPATOSPLENIC CANDIDIASIS [None]
